FAERS Safety Report 8380116-8 (Version None)
Quarter: 2012Q1

REPORT INFORMATION
  Report Type: 
  Country: None (occurrence: None)
  Receive Date: 20120323
  Receipt Date: 20110404
  Transmission Date: 20120608
  Serious: Yes (Other)
  Sender: FDA-Public Use
  Company Number: 163-21880-11040489

PATIENT
  Age: 77 Year
  Sex: Female

DRUGS (7)
  1. DEXAMETHASONE [Concomitant]
  2. AMLODIPINE [Concomitant]
  3. ACTIQ (FENTANYL CITRATE) (UNKNOWN) [Concomitant]
  4. REVLIMID [Suspect]
     Indication: MULTIPLE MYELOMA
     Dosage: 15 MG, DAILY X 21 DAYS, PO
     Route: 048
     Dates: start: 20110301
  5. VELCADE [Concomitant]
  6. ASPIRIN [Concomitant]
  7. BACTRIM DS (BACTRIM) (UNKNOWN) [Concomitant]

REACTIONS (2)
  - URTICARIA [None]
  - RASH [None]
